FAERS Safety Report 17116611 (Version 3)
Quarter: 2022Q2

REPORT INFORMATION
  Report Type: Spontaneous
  Country: ES (occurrence: ES)
  Receive Date: 20191205
  Receipt Date: 20220425
  Transmission Date: 20220720
  Serious: Yes (Other)
  Sender: FDA-Public Use
  Company Number: ES-MOLTENI-2019ML000415

PATIENT
  Age: 66 Year
  Sex: Male

DRUGS (6)
  1. BUPRENORPHINE [Suspect]
     Active Substance: BUPRENORPHINE
     Indication: Bone pain
     Dosage: UNK
     Route: 065
     Dates: start: 201602
  2. BUPRENORPHINE [Suspect]
     Active Substance: BUPRENORPHINE
     Dosage: UNK
     Route: 065
     Dates: start: 201701
  3. PREGABALIN [Suspect]
     Active Substance: PREGABALIN
     Indication: Bone pain
     Dosage: 300 MILLIGRAM, QD (150 MG EVERY 12 HOUR(S))
     Route: 065
     Dates: start: 201701
  4. IBUPROFEN [Suspect]
     Active Substance: IBUPROFEN
     Indication: Bone pain
     Dosage: 1200 MILLIGRAM, QD (600 MG EVERY 12 HOUR(S))
     Route: 065
     Dates: start: 201701
  5. MORPHINE SULFATE [Suspect]
     Active Substance: MORPHINE SULFATE
     Indication: Breakthrough pain
     Dosage: 10 MILLIGRAM (4-5 MORPHINE RESCUES)
     Route: 065
     Dates: start: 201701
  6. NALOXONE HYDROCHLORIDE\OXYCODONE HYDROCHLORIDE [Suspect]
     Active Substance: NALOXONE HYDROCHLORIDE\OXYCODONE HYDROCHLORIDE
     Indication: Bone pain
     Dosage: 30 MILLIGRAM, QD (15 MILLIGRAM, Q12H(10+5 MG) )
     Route: 065
     Dates: start: 201701

REACTIONS (4)
  - Neurotoxicity [Recovering/Resolving]
  - Disorientation [Recovering/Resolving]
  - Somnolence [Recovering/Resolving]
  - Off label use [Unknown]

NARRATIVE: CASE EVENT DATE: 20170101
